FAERS Safety Report 20322114 (Version 1)
Quarter: 2022Q1

REPORT INFORMATION
  Report Type: Spontaneous
  Country: GB (occurrence: GB)
  Receive Date: 20220111
  Receipt Date: 20220111
  Transmission Date: 20220423
  Serious: Yes (Other)
  Sender: FDA-Public Use
  Company Number: None

PATIENT
  Age: 72 Year
  Sex: Male
  Weight: 89 kg

DRUGS (11)
  1. PIPERACILLIN SODIUM\TAZOBACTAM SODIUM [Suspect]
     Active Substance: PIPERACILLIN SODIUM\TAZOBACTAM SODIUM
     Dosage: PIPERACILLIN 4G AND TAZOBACTAM 500MG
     Route: 042
     Dates: start: 20211223
  2. ACYCLOVIR [Concomitant]
     Active Substance: ACYCLOVIR
     Dosage: 1 DF, 4X/DAY
     Dates: start: 20211105, end: 20211203
  3. ALENDRONIC ACID [Concomitant]
     Active Substance: ALENDRONIC ACID
     Dosage: 1 DF, WEEKLY
     Dates: start: 20190626
  4. ALLOPURINOL [Concomitant]
     Active Substance: ALLOPURINOL
     Dosage: 1 DF, 1X/DAY (IN THE MORNING)
     Dates: start: 20211105, end: 20211203
  5. CALCIUM\CHOLECALCIFEROL [Concomitant]
     Active Substance: CALCIUM\CHOLECALCIFEROL
     Dosage: 1 DF, 2X/DAY (FOR 6 DAYS A WEEK)
     Dates: start: 20190626
  6. COCODAMOL [Concomitant]
     Active Substance: ACETAMINOPHEN\CODEINE PHOSPHATE
     Dosage: 1 DF, AS NEEDED (EVERY SIX HOURS)
     Dates: start: 20211105, end: 20211203
  7. DOMPERIDONE [Concomitant]
     Active Substance: DOMPERIDONE
     Dosage: 1 DF, AS NEEDED (3 TIMES A DAY)
     Dates: start: 20211105, end: 20211203
  8. FOLIC ACID [Concomitant]
     Active Substance: FOLIC ACID
     Dosage: 1 DF, 1X/DAY (IN THE MORNING)
     Dates: start: 20211105, end: 20211203
  9. LATANOPROST [Concomitant]
     Active Substance: LATANOPROST
     Dosage: 1 DROP, 1X/DAY (USE ONE DROP AT NIGHT TO BOTH EYES)
     Dates: start: 20210621
  10. OMEPRAZOLE [Concomitant]
     Active Substance: OMEPRAZOLE
     Dosage: 1 DF, 1X/DAY (IN THE MORNING)
     Dates: start: 20190626
  11. RIVAROXABAN [Concomitant]
     Active Substance: RIVAROXABAN
     Dosage: 1 DF, 1X/DAY (WITH FOOD)
     Dates: start: 20211105, end: 20211205

REACTIONS (1)
  - Renal tubular necrosis [Recovered/Resolved]

NARRATIVE: CASE EVENT DATE: 20211223
